FAERS Safety Report 8663992 (Version 2)
Quarter: 2012Q4

REPORT INFORMATION
  Report Type: 
  Country: IE (occurrence: IE)
  Receive Date: 20120713
  Receipt Date: 20120919
  Transmission Date: 20130627
  Serious: Yes (Other)
  Sender: FDA-Public Use
  Company Number: IE-PFIZER INC-2012166313

PATIENT
  Age: 28 Year
  Sex: Male
  Weight: 75 kg

DRUGS (1)
  1. CHAMPIX [Suspect]
     Dosage: 1 mg, 2x/day
     Route: 048
     Dates: start: 20110120, end: 20110228

REACTIONS (2)
  - Blindness transient [Recovered/Resolved]
  - Dehydration [Recovered/Resolved]
